FAERS Safety Report 12924070 (Version 5)
Quarter: 2017Q1

REPORT INFORMATION
  Report Type: Report from Study
  Country: None (occurrence: TR)
  Receive Date: 20161108
  Receipt Date: 20170209
  Transmission Date: 20170428
  Serious: Yes (Hospitalization)
  Sender: FDA-Public Use
  Company Number: TR-ABBVIE-16P-161-1771307-00

PATIENT
  Age: 33 Year
  Sex: Female
  Weight: 75 kg

DRUGS (6)
  1. DUODOPA [Suspect]
     Active Substance: CARBIDOPA\LEVODOPA
     Indication: PARKINSON^S DISEASE
     Dosage: MORNING DOSE: 6.8 ML, CONTINUOUS DOSE: 0.9 ML, EXTRA DOSE: 0.5 ML
     Route: 050
     Dates: start: 20160817, end: 20161122
  2. BENEXOL [Concomitant]
     Active Substance: CYANOCOBALAMIN\PYRIDOXINE\THIAMINE
     Indication: PARKINSON^S DISEASE
     Dosage: 250/250 MG
     Route: 048
     Dates: start: 20160817
  3. MUKOZERO [Concomitant]
     Indication: INCREASED BRONCHIAL SECRETION
     Route: 048
     Dates: start: 20160817
  4. PK MERZ [Concomitant]
     Active Substance: AMANTADINE SULFATE
     Indication: PARKINSON^S DISEASE
     Route: 048
     Dates: start: 2014
  5. MIRTARON [Concomitant]
     Indication: SLEEP DISORDER
     Dosage: 1X1/2
     Route: 048
     Dates: start: 2015
  6. FOLBIOL [Concomitant]
     Active Substance: FOLIC ACID
     Indication: PARKINSON^S DISEASE
     Route: 048
     Dates: start: 2016

REACTIONS (6)
  - Urinary tract infection [Recovered/Resolved]
  - Decreased appetite [Not Recovered/Not Resolved]
  - Fall [Recovered/Resolved]
  - Vomiting [Recovered/Resolved]
  - Nausea [Not Recovered/Not Resolved]
  - Urinary incontinence [Recovered/Resolved]

NARRATIVE: CASE EVENT DATE: 20161020
